FAERS Safety Report 8972208 (Version 2)
Quarter: 2013Q2

REPORT INFORMATION
  Report Type: Spontaneous
  Country: NL (occurrence: NL)
  Receive Date: 20121219
  Receipt Date: 20130415
  Transmission Date: 20140414
  Serious: Yes (Hospitalization)
  Sender: FDA-Public Use
  Company Number: NL-PFIZER INC-2012319600

PATIENT
  Age: 34 Year
  Sex: Female
  Weight: 85 kg

DRUGS (3)
  1. AMLODIPINE BESILATE [Suspect]
     Indication: HYPERTENSION
     Dosage: 10 MG, 1X/DAY
     Dates: start: 200206, end: 201209
  2. ETHINYLESTRADIOL [Concomitant]
     Indication: CONTRACEPTION
     Dosage: UNK
     Dates: start: 1988
  3. GESTODENE [Concomitant]
     Indication: CONTRACEPTION
     Dosage: UNK
     Dates: start: 1988

REACTIONS (1)
  - Parasomnia [Recovered/Resolved]
